FAERS Safety Report 11335192 (Version 1)
Quarter: 2015Q3

REPORT INFORMATION
  Report Type: Spontaneous
  Country: US (occurrence: None)
  Receive Date: 20150731
  Receipt Date: 20150731
  Transmission Date: 20151125
  Serious: No
  Sender: FDA-Public Use
  Company Number: None

PATIENT
  Age: 28 Year
  Sex: Female

DRUGS (11)
  1. OMEPRAZOLE. [Concomitant]
     Active Substance: OMEPRAZOLE
  2. PANCREALIPASE [Concomitant]
     Active Substance: PANCRELIPASE
  3. MEROPENEM. [Suspect]
     Active Substance: MEROPENEM
     Indication: INFECTION
     Route: 042
     Dates: start: 20140829, end: 20140901
  4. INSULIN DETEMIR [Concomitant]
     Active Substance: INSULIN DETEMIR
  5. MONTELUKAST [Concomitant]
     Active Substance: MONTELUKAST SODIUM
  6. INSULLIN ASPART [Concomitant]
  7. URSODIAL [Concomitant]
  8. VITAMIN [Concomitant]
     Active Substance: VITAMINS
  9. AZITHROMYCIN [Concomitant]
     Active Substance: AZITHROMYCIN ANHYDROUS
  10. ALBUTEROL. [Concomitant]
     Active Substance: ALBUTEROL
  11. CALCIUM [Concomitant]
     Active Substance: CALCIUM

REACTIONS (1)
  - Rash [None]

NARRATIVE: CASE EVENT DATE: 20140901
